FAERS Safety Report 17285205 (Version 2)
Quarter: 2020Q1

REPORT INFORMATION
  Report Type: Spontaneous
  Country: DZ (occurrence: DZ)
  Receive Date: 20200117
  Receipt Date: 20200316
  Transmission Date: 20200409
  Serious: Yes (Other)
  Sender: FDA-Public Use
  Company Number: DZ-ALEXION PHARMACEUTICALS INC.-A202000285

PATIENT
  Age: 76 Year
  Sex: Male
  Weight: 59 kg

DRUGS (4)
  1. SOLIRIS [Suspect]
     Active Substance: ECULIZUMAB
     Indication: PAROXYSMAL NOCTURNAL HAEMOGLOBINURIA
     Dosage: 600 MG, QW
     Route: 042
     Dates: start: 20191112
  2. FOLIC ACID. [Concomitant]
     Active Substance: FOLIC ACID
     Indication: HAEMOLYSIS
     Dosage: 3 CP/DAY
     Route: 065
     Dates: start: 20190226
  3. OSPEN                              /00001801/ [Concomitant]
     Indication: ANTIBIOTIC PROPHYLAXIS
     Dosage: 1 CP/DAY
     Route: 065
     Dates: start: 20191112
  4. SOLIRIS [Suspect]
     Active Substance: ECULIZUMAB
     Dosage: 900 MG, EVERY 15 DAYS
     Route: 042
     Dates: start: 20200107

REACTIONS (6)
  - Blood lactate dehydrogenase decreased [Unknown]
  - Condition aggravated [Unknown]
  - Haemoglobinuria [Recovering/Resolving]
  - Bicytopenia [Not Recovered/Not Resolved]
  - Serum ferritin increased [Unknown]
  - Blood lactate dehydrogenase increased [Unknown]

NARRATIVE: CASE EVENT DATE: 20191228
